FAERS Safety Report 7158402-9 (Version None)
Quarter: 2010Q4

REPORT INFORMATION
  Report Type: 
  Country: None (occurrence: None)
  Receive Date: 20101214
  Receipt Date: 20100603
  Transmission Date: 20110411
  Serious: No
  Sender: FDA-Public Use
  Company Number: US-ASTRAZENECA-2010SE25681

PATIENT
  Age: 867 Month
  Sex: Female
  Weight: 68 kg

DRUGS (3)
  1. CRESTOR [Suspect]
     Indication: BLOOD CHOLESTEROL INCREASED
     Route: 048
     Dates: start: 20090602
  2. POTASSIUM KIONEX [Concomitant]
     Indication: BLOOD POTASSIUM DECREASED
  3. METOPROLOL [Concomitant]
     Indication: HYPERTENSION

REACTIONS (2)
  - BLOOD POTASSIUM DECREASED [None]
  - VITAMIN D DECREASED [None]
